FAERS Safety Report 9843260 (Version 3)
Quarter: 2014Q1

REPORT INFORMATION
  Report Type: Report from Study
  Country: US (occurrence: US)
  Receive Date: 20140124
  Receipt Date: 20140307
  Transmission Date: 20141002
  Serious: Yes (Hospitalization)
  Sender: FDA-Public Use
  Company Number: US-ABBVIE-14P-163-1191732-00

PATIENT
  Age: 41 Year
  Sex: Male
  Weight: 73.09 kg

DRUGS (6)
  1. HUMIRA [Suspect]
     Indication: CROHN^S DISEASE
     Route: 058
     Dates: start: 2010, end: 201301
  2. HUMIRA [Suspect]
     Dates: start: 20140129
  3. 6-MP [Concomitant]
     Indication: CROHN^S DISEASE
  4. PREDNISONE [Concomitant]
     Indication: CROHN^S DISEASE
  5. IRON [Concomitant]
     Indication: MINERAL SUPPLEMENTATION
  6. PRESCRIPTION STRENGTH ANTIDIARRHEA MEDICATION [Concomitant]
     Indication: CROHN^S DISEASE

REACTIONS (8)
  - Intestinal obstruction [Recovered/Resolved]
  - Crohn^s disease [Recovered/Resolved]
  - Abdominal abscess [Recovered/Resolved]
  - Inguinal hernia strangulated [Unknown]
  - Gastroenteritis Escherichia coli [Recovering/Resolving]
  - Fistula [Recovered/Resolved]
  - Influenza like illness [Recovered/Resolved]
  - Weight decreased [Recovered/Resolved]
